FAERS Safety Report 11743427 (Version 1)
Quarter: 2015Q4

REPORT INFORMATION
  Report Type: Spontaneous
  Country: AU (occurrence: AU)
  Receive Date: 20151116
  Receipt Date: 20151116
  Transmission Date: 20160304
  Serious: Yes (Other)
  Sender: FDA-Public Use
  Company Number: AU-ARBOR PHARMACEUTICALS, LLC-AU-2015ARB002434

PATIENT
  Sex: Male
  Weight: 3.61 kg

DRUGS (4)
  1. LAMOTRIGINE. [Suspect]
     Active Substance: LAMOTRIGINE
     Indication: FOETAL EXPOSURE DURING PREGNANCY
     Dosage: 400 MG/DAY
     Route: 064
  2. THYROXINE [Suspect]
     Active Substance: LEVOTHYROXINE
     Indication: FOETAL EXPOSURE DURING PREGNANCY
     Dosage: 100 ?G/DAY
     Route: 064
  3. QUETIAPINE [Suspect]
     Active Substance: QUETIAPINE
     Indication: FOETAL EXPOSURE DURING PREGNANCY
     Dosage: 600 MG/DAY
     Route: 064
  4. LAMOTRIGINE. [Suspect]
     Active Substance: LAMOTRIGINE
     Dosage: 500 MG/DAY
     Route: 064

REACTIONS (6)
  - Tension [Recovering/Resolving]
  - Drug withdrawal syndrome neonatal [Recovering/Resolving]
  - Neonatal behavioural syndrome [Recovering/Resolving]
  - Irritability [Recovering/Resolving]
  - Feeding disorder of infancy or early childhood [Recovering/Resolving]
  - Foetal exposure during pregnancy [Recovered/Resolved]
